FAERS Safety Report 7460650-5 (Version None)
Quarter: 2011Q2

REPORT INFORMATION
  Report Type: 
  Country: None (occurrence: None)
  Receive Date: 20110505
  Receipt Date: 20110419
  Transmission Date: 20111010
  Serious: Yes (Hospitalization, Other)
  Sender: FDA-Public Use
  Company Number: US-BAYER-201039890NA

PATIENT
  Age: 53 Year
  Sex: Female
  Weight: 98 kg

DRUGS (9)
  1. SERTRALINE [Concomitant]
     Route: 048
  2. YAZ [Suspect]
     Indication: CONTRACEPTION
     Route: 048
  3. TEVETEN [Concomitant]
  4. FLEXERIL [Concomitant]
     Dosage: 10 MG, TID
     Route: 048
  5. TEVETEN HCT [Concomitant]
     Indication: HYPERTENSION
     Dosage: UNK UNK, QD
     Route: 048
  6. NAPROSYN [Concomitant]
     Dosage: 500 MG, BID
     Route: 048
  7. YAZ [Suspect]
     Indication: MENORRHAGIA
  8. YASMIN [Suspect]
     Indication: CONTRACEPTION
     Route: 048
  9. YASMIN [Suspect]
     Indication: MENORRHAGIA

REACTIONS (1)
  - DEEP VEIN THROMBOSIS [None]
